FAERS Safety Report 5919126-6 (Version None)
Quarter: 2008Q4

REPORT INFORMATION
  Report Type: 
  Country: None (occurrence: None)
  Receive Date: 20081015
  Receipt Date: 20081008
  Transmission Date: 20090506
  Serious: Yes (Death, Hospitalization)
  Sender: FDA-Public Use
  Company Number: GB-AMGEN-UK312347

PATIENT
  Sex: Male

DRUGS (4)
  1. VECTIBIX [Suspect]
     Indication: OESOPHAGEAL CARCINOMA
     Dates: start: 20080922
  2. CAPECITABINE [Concomitant]
     Dates: start: 20080922, end: 20080930
  3. EPIRUBICIN [Concomitant]
     Dates: start: 20080922
  4. OXALIPLATIN [Concomitant]
     Dates: start: 20080922

REACTIONS (2)
  - DEHYDRATION [None]
  - DIARRHOEA [None]
